FAERS Safety Report 15313850 (Version 3)
Quarter: 2019Q4

REPORT INFORMATION
  Report Type: Report from Study
  Country: US (occurrence: US)
  Receive Date: 20180824
  Receipt Date: 20191113
  Transmission Date: 20200122
  Serious: Yes (Hospitalization, Other)
  Sender: FDA-Public Use
  Company Number: US-ASTELLAS-2018US017900

PATIENT
  Age: 76 Year
  Sex: Male
  Weight: 127 kg

DRUGS (2)
  1. ENZALUTAMIDE [Suspect]
     Active Substance: ENZALUTAMIDE
     Indication: PROSTATE CANCER
     Route: 048
     Dates: start: 2017
  2. ENZALUTAMIDE [Suspect]
     Active Substance: ENZALUTAMIDE
     Route: 048
     Dates: end: 20180818

REACTIONS (4)
  - Treatment noncompliance [Unknown]
  - Transient ischaemic attack [Unknown]
  - Weight decreased [Unknown]
  - Hypoacusis [Unknown]

NARRATIVE: CASE EVENT DATE: 2017
